FAERS Safety Report 20157295 (Version 1)
Quarter: 2021Q4

REPORT INFORMATION
  Report Type: Spontaneous
  Country: IN (occurrence: IN)
  Receive Date: 20211207
  Receipt Date: 20211207
  Transmission Date: 20220303
  Serious: Yes (Hospitalization, Other)
  Sender: FDA-Public Use
  Company Number: IN-SA-SAC20211027000223

PATIENT
  Age: 69 Year
  Sex: Male

DRUGS (2)
  1. TOUJEO [Suspect]
     Active Substance: INSULIN GLARGINE
     Indication: Type 2 diabetes mellitus
     Dosage: UPTITRATED THE DOSE TO 16-20 IU
     Route: 065
     Dates: start: 2019
  2. AMARYL [Concomitant]
     Active Substance: GLIMEPIRIDE
     Dosage: UNK
     Dates: start: 2009

REACTIONS (3)
  - Seizure [Unknown]
  - Hypokalaemia [Recovering/Resolving]
  - Hypoglycaemia [Unknown]
